FAERS Safety Report 5130855-7 (Version None)
Quarter: 2006Q4

REPORT INFORMATION
  Report Type: 
  Country: None (occurrence: None)
  Receive Date: 20061019
  Receipt Date: 20061012
  Transmission Date: 20070319
  Serious: Yes (Hospitalization)
  Sender: FDA-Public Use
  Company Number: US-SANOFI-SYNTHELABO-F03200600219

PATIENT
  Age: 749 Month
  Sex: Male

DRUGS (3)
  1. OXALIPLATIN [Suspect]
     Indication: COLON CANCER
     Dosage: 85 MG/M2 (156 MG)
     Route: 042
     Dates: start: 20060829, end: 20060829
  2. LEUCOVORIN CALCIUM [Suspect]
     Indication: COLON CANCER
     Dosage: 730 MG /400MG/M2
     Route: 042
     Dates: start: 20060829, end: 20060829
  3. FLUOROURACIL [Suspect]
     Indication: COLON CANCER
     Route: 042
     Dates: start: 20060829, end: 20060831

REACTIONS (7)
  - DEHYDRATION [None]
  - DIARRHOEA [None]
  - FATIGUE [None]
  - HYPOPHOSPHATAEMIA [None]
  - HYPOTENSION [None]
  - INFECTION [None]
  - NEUTROPHIL COUNT DECREASED [None]
